FAERS Safety Report 12230387 (Version 1)
Quarter: 2016Q1

REPORT INFORMATION
  Report Type: Spontaneous
  Country: OM (occurrence: None)
  Receive Date: 20160331
  Receipt Date: 20160331
  Transmission Date: 20160526
  Serious: Yes (Disabling)
  Sender: FDA-Public Use
  Company Number: None

PATIENT
  Age: 34 Year
  Sex: Male
  Weight: 70 kg

DRUGS (1)
  1. BACTROBAN [Suspect]
     Active Substance: MUPIROCIN\MUPIROCIN CALCIUM
     Indication: BACTERIAL DISEASE CARRIER

REACTIONS (3)
  - Haemorrhoidal haemorrhage [None]
  - Depressed mood [None]
  - Constipation [None]

NARRATIVE: CASE EVENT DATE: 20160303
